FAERS Safety Report 6640189-7 (Version None)
Quarter: 2010Q1

REPORT INFORMATION
  Report Type: 
  Country: None (occurrence: None)
  Receive Date: 20100318
  Receipt Date: 20100308
  Transmission Date: 20100710
  Serious: Yes (Disabling)
  Sender: FDA-Public Use
  Company Number: CA-ROCHE-689960

PATIENT
  Age: 41 Year

DRUGS (1)
  1. ACCUTANE [Suspect]
     Indication: DRUG USE FOR UNKNOWN INDICATION
     Route: 065

REACTIONS (6)
  - ACNE CYSTIC [None]
  - BONE PAIN [None]
  - DEPRESSION [None]
  - INFERTILITY [None]
  - MENTAL DISORDER [None]
  - SCAR [None]
